FAERS Safety Report 9851583 (Version 1)
Quarter: 2014Q1

REPORT INFORMATION
  Report Type: Spontaneous
  Country: US (occurrence: US)
  Receive Date: 20140129
  Receipt Date: 20140129
  Transmission Date: 20141002
  Serious: No
  Sender: FDA-Public Use
  Company Number: US-BIOGENIDEC-2014BI006932

PATIENT
  Age: 45 Year
  Sex: Male

DRUGS (2)
  1. TECFIDERA [Suspect]
     Indication: MULTIPLE SCLEROSIS
     Route: 048
     Dates: start: 20131124, end: 20131130
  2. TECFIDERA [Suspect]
     Indication: MULTIPLE SCLEROSIS
     Route: 048
     Dates: start: 20131201, end: 20140111

REACTIONS (5)
  - Tremor [Recovered/Resolved]
  - Clonus [Recovered/Resolved]
  - Dysstasia [Recovered/Resolved]
  - Mobility decreased [Recovered/Resolved]
  - Multiple sclerosis [Recovered/Resolved]
